FAERS Safety Report 13261790 (Version 1)
Quarter: 2017Q1

REPORT INFORMATION
  Report Type: Report from Study
  Country: None (occurrence: US)
  Receive Date: 20170222
  Receipt Date: 20170222
  Transmission Date: 20170428
  Serious: Yes (Hospitalization)
  Sender: FDA-Public Use
  Company Number: US-ABBVIE-17P-163-1875641-00

PATIENT
  Age: 2 Month
  Sex: Male

DRUGS (4)
  1. SYNAGIS [Suspect]
     Active Substance: PALIVIZUMAB
     Indication: ILL-DEFINED DISORDER
     Route: 030
     Dates: start: 20170111
  2. SYNAGIS [Suspect]
     Active Substance: PALIVIZUMAB
     Indication: CONGENITAL CARDIOVASCULAR ANOMALY
     Route: 030
     Dates: start: 20170111
  3. SYNAGIS [Suspect]
     Active Substance: PALIVIZUMAB
     Indication: ILL-DEFINED DISORDER
     Route: 030
     Dates: start: 20170210
  4. SYNAGIS [Suspect]
     Active Substance: PALIVIZUMAB
     Indication: CONGENITAL CARDIOVASCULAR ANOMALY
     Route: 030
     Dates: start: 20170210

REACTIONS (1)
  - Respiratory syncytial virus infection [Unknown]

NARRATIVE: CASE EVENT DATE: 20170111
